FAERS Safety Report 19228099 (Version 1)
Quarter: 2021Q2

REPORT INFORMATION
  Report Type: Spontaneous
  Country: JP (occurrence: JP)
  Receive Date: 20210507
  Receipt Date: 20210507
  Transmission Date: 20210717
  Serious: Yes (Death, Other)
  Sender: FDA-Public Use
  Company Number: JP-LUPIN PHARMACEUTICALS INC.-2021-06412

PATIENT
  Age: 5 Decade
  Sex: Male
  Weight: 87 kg

DRUGS (1)
  1. TADALAFIL. [Suspect]
     Active Substance: TADALAFIL
     Indication: PRODUCT USED FOR UNKNOWN INDICATION
     Dosage: UNK
     Route: 048

REACTIONS (6)
  - Arrhythmia [Fatal]
  - Loss of consciousness [Fatal]
  - Stenosis [Fatal]
  - Sudden cardiac death [Fatal]
  - Prescription drug used without a prescription [Fatal]
  - Hypertensive nephropathy [Fatal]
